FAERS Safety Report 21494676 (Version 1)
Quarter: 2022Q4

REPORT INFORMATION
  Report Type: Spontaneous
  Country: US (occurrence: US)
  Receive Date: 20221021
  Receipt Date: 20221021
  Transmission Date: 20230113
  Serious: No
  Sender: FDA-Public Use
  Company Number: US-CELLTRION INC.-2022US011962

PATIENT

DRUGS (3)
  1. INFLECTRA [Suspect]
     Active Substance: INFLIXIMAB-DYYB
     Indication: Product used for unknown indication
     Dosage: 100MG/20ML DIRECTIONS: 361.36 MG AT WEEK 0,2, WEEK 6. EVERY 8 WEEKS THEREAFTER QUANTITY: 8 REFILLS:
  2. INFLECTRA [Suspect]
     Active Substance: INFLIXIMAB-DYYB
     Dosage: 361.36 MG AT WEEK 0, 2, WEEK 6. EVERY 8 WEEKS THEREAFTER
     Route: 065
  3. INFLECTRA [Suspect]
     Active Substance: INFLIXIMAB-DYYB
     Dosage: 368.63 MG AT WEEK 2, WEEK 6, REPEAT EVERY 8 WEEKS QUANTITY: 4 REFILLS:6
     Route: 065

REACTIONS (1)
  - Unevaluable event [Unknown]
